FAERS Safety Report 8407079 (Version 3)
Quarter: 2013Q2

REPORT INFORMATION
  Report Type: Spontaneous
  Country: US (occurrence: None)
  Receive Date: 20111227
  Receipt Date: 20130107
  Transmission Date: 20140414
  Serious: No
  Sender: FDA-Public Use
  Company Number: PHEH2011US06563

PATIENT
  Age: 36 Year
  Sex: Female
  Weight: 61.7 kg

DRUGS (5)
  1. GILENYA [Suspect]
     Indication: MULTIPLE SCLEROSIS
     Dosage: 0.5 MG, DAILY, ORAL
     Route: 048
     Dates: start: 20111006
  2. KEPPRA [Concomitant]
  3. ROPINIROLE [Concomitant]
  4. XANAX [Concomitant]
  5. LEXAPRO [Concomitant]

REACTIONS (8)
  - VOMITING [None]
  - DIARRHOEA [None]
  - HEADACHE [None]
  - NAUSEA [None]
  - Immune system disorder [None]
  - Restless legs syndrome [None]
  - Somnolence [None]
  - Nasopharyngitis [None]
